FAERS Safety Report 9984615 (Version 1)
Quarter: 2014Q1

REPORT INFORMATION
  Report Type: Spontaneous
  Country: US (occurrence: US)
  Receive Date: 20140304
  Receipt Date: 20140304
  Transmission Date: 20141002
  Serious: No
  Sender: FDA-Public Use
  Company Number: US-ABBVIE-13P-163-1077046-00

PATIENT
  Age: 15 Year
  Sex: Female

DRUGS (5)
  1. HUMIRA [Suspect]
     Indication: JUVENILE IDIOPATHIC ARTHRITIS
     Route: 058
     Dates: start: 201208
  2. METHOTREXATE [Concomitant]
     Indication: JUVENILE IDIOPATHIC ARTHRITIS
  3. OMEPRAZOLE [Concomitant]
     Indication: JUVENILE IDIOPATHIC ARTHRITIS
  4. FOLIC ACID [Concomitant]
     Indication: JUVENILE IDIOPATHIC ARTHRITIS
  5. WELLBUTRIN [Concomitant]
     Indication: ANXIETY

REACTIONS (1)
  - Injection site pain [Not Recovered/Not Resolved]
